FAERS Safety Report 8211738-2 (Version None)
Quarter: 2012Q1

REPORT INFORMATION
  Report Type: 
  Country: None (occurrence: None)
  Receive Date: 20120315
  Receipt Date: 20120307
  Transmission Date: 20120608
  Serious: Yes (Life-Threatening, Other)
  Sender: FDA-Public Use
  Company Number: US-JNJFOC-20100101849

PATIENT
  Sex: Male

DRUGS (10)
  1. ABIRATERONE ACETATE [Suspect]
     Indication: PROSTATE CANCER METASTATIC
     Dosage: CYCLE 3
     Route: 048
     Dates: start: 20090723, end: 20090918
  2. ABIRATERONE ACETATE [Suspect]
     Dosage: CYCLE 1
     Route: 048
  3. PREDNISONE TAB [Suspect]
     Indication: PROSTATE CANCER METASTATIC
     Route: 048
     Dates: start: 20090723
  4. ZOCOR [Suspect]
     Indication: UNEVALUABLE EVENT
     Dosage: AT BEDTIME.
     Route: 065
     Dates: end: 20090918
  5. LORAZEPAM [Concomitant]
     Indication: ANXIETY
     Route: 048
     Dates: start: 20090709
  6. ATENOLOL [Concomitant]
     Indication: HYPERTENSION
     Route: 048
     Dates: start: 20090618
  7. LUPRON [Concomitant]
     Indication: PROSTATE CANCER
     Route: 030
     Dates: start: 20090723
  8. LISINOPRIL [Concomitant]
     Indication: HYPERTENSION
     Route: 048
     Dates: start: 20090618
  9. ABIRATERONE ACETATE [Suspect]
     Dosage: CYCLE 2
     Route: 048
  10. ACETYLSALICYLIC ACID SRT [Concomitant]
     Indication: CARDIOVASCULAR EVENT PROPHYLAXIS
     Route: 048
     Dates: start: 19991122

REACTIONS (1)
  - ALANINE AMINOTRANSFERASE INCREASED [None]
